FAERS Safety Report 4611018-8 (Version None)
Quarter: 2005Q1

REPORT INFORMATION
  Report Type: 
  Country: None (occurrence: None)
  Receive Date: 20050317
  Receipt Date: 20050105
  Transmission Date: 20050727
  Serious: Yes (Hospitalization)
  Sender: FDA-Public Use
  Company Number: US-AMGEN-US106075

PATIENT
  Sex: Female
  Weight: 74.7 kg

DRUGS (11)
  1. ARANESP [Suspect]
     Indication: ANAEMIA OF MALIGNANT DISEASE
     Route: 058
     Dates: start: 20040901, end: 20041013
  2. NEULASTA [Suspect]
     Indication: CHEMOTHERAPY
     Route: 058
     Dates: start: 20041014, end: 20041014
  3. XYOTAX [Suspect]
     Dates: start: 20040618, end: 20041013
  4. CARBOPLATIN [Suspect]
     Dates: start: 20040618, end: 20041013
  5. SYNTHROID [Concomitant]
     Route: 048
     Dates: end: 20041021
  6. VASOTEC [Concomitant]
     Route: 048
     Dates: end: 20041021
  7. MAGNESIUM OXIDE [Concomitant]
     Route: 048
     Dates: start: 20040630, end: 20041021
  8. MICRO-K [Concomitant]
     Route: 048
     Dates: start: 20040623, end: 20041021
  9. AMARYL [Concomitant]
     Route: 048
     Dates: start: 20040721, end: 20041021
  10. ZOFRAN [Concomitant]
     Route: 048
  11. DECADRON [Concomitant]
     Route: 048

REACTIONS (5)
  - CHEST PAIN [None]
  - GOITRE [None]
  - MEDIASTINAL MASS [None]
  - NON-CARDIAC CHEST PAIN [None]
  - UROGENITAL FISTULA [None]
